FAERS Safety Report 7784529-4 (Version None)
Quarter: 2011Q3

REPORT INFORMATION
  Report Type: 
  Country: None (occurrence: None)
  Receive Date: 20110928
  Receipt Date: 20110919
  Transmission Date: 20111222
  Serious: Yes (Hospitalization)
  Sender: FDA-Public Use
  Company Number: US-SANOFI-AVENTIS-2011SA061947

PATIENT
  Age: 66 Year
  Sex: Female

DRUGS (3)
  1. SOLOSTAR [Suspect]
  2. LANTUS [Suspect]
     Dosage: 12 AND 15UNITS AM AND PM
     Route: 058
  3. NOVOLOG [Concomitant]

REACTIONS (4)
  - CYSTITIS [None]
  - WEIGHT DECREASED [None]
  - GLYCOSYLATED HAEMOGLOBIN INCREASED [None]
  - KIDNEY INFECTION [None]
